FAERS Safety Report 9603258 (Version 2)
Quarter: 2013Q4

REPORT INFORMATION
  Report Type: Spontaneous
  Country: IE (occurrence: IE)
  Receive Date: 20131007
  Receipt Date: 20131007
  Transmission Date: 20140711
  Serious: Yes (Death, Other)
  Sender: FDA-Public Use
  Company Number: IE-PFIZER INC-2013027921

PATIENT
  Sex: Male

DRUGS (3)
  1. LIPITOR [Suspect]
  2. EFEXOR XL [Suspect]
     Dosage: 37.5 MG, UNK
  3. RAMILO [Suspect]

REACTIONS (4)
  - Death [Fatal]
  - Pulmonary fibrosis [Unknown]
  - Diabetes mellitus [Unknown]
  - Dyspnoea [Unknown]
